FAERS Safety Report 8235094-9 (Version None)
Quarter: 2012Q1

REPORT INFORMATION
  Report Type: 
  Country: None (occurrence: None)
  Receive Date: 20120326
  Receipt Date: 20120319
  Transmission Date: 20120608
  Serious: Yes (Hospitalization)
  Sender: FDA-Public Use
  Company Number: FR-PFIZER INC-2012070503

PATIENT
  Age: 23 Year
  Sex: Male

DRUGS (2)
  1. FLUCONAZOLE [Suspect]
     Indication: PROPHYLAXIS
     Dosage: UNK
     Route: 048
     Dates: start: 20110901
  2. FLUCONAZOLE [Suspect]
     Dosage: 400 MG, 1X/DAY
     Route: 048
     Dates: start: 20111101, end: 20111213

REACTIONS (1)
  - PANCYTOPENIA [None]
